FAERS Safety Report 7509455-7 (Version None)
Quarter: 2011Q2

REPORT INFORMATION
  Report Type: 
  Country: None (occurrence: None)
  Receive Date: 20110527
  Receipt Date: 20110524
  Transmission Date: 20111010
  Serious: Yes (Other)
  Sender: FDA-Public Use
  Company Number: JP-PFIZER INC-2011107377

PATIENT
  Age: 88 Year
  Sex: Female

DRUGS (4)
  1. LOSARTAN POTASSIUM [Concomitant]
     Dosage: UNK
  2. SELBEX [Concomitant]
  3. NORVASC [Suspect]
     Dosage: UNK
  4. ARICEPT [Suspect]
     Dosage: UNK

REACTIONS (2)
  - ELECTROCARDIOGRAM ABNORMAL [None]
  - HYPOKALAEMIA [None]
